FAERS Safety Report 6862270-X (Version None)
Quarter: 2010Q3

REPORT INFORMATION
  Report Type: 
  Country: None (occurrence: None)
  Receive Date: 20100721
  Receipt Date: 20100711
  Transmission Date: 20110219
  Serious: Yes (Death)
  Sender: FDA-Public Use
  Company Number: IL-NOVOPROD-311331

PATIENT
  Age: 21 Year
  Sex: Male

DRUGS (1)
  1. NOVOSEVEN RT [Suspect]
     Indication: HAEMORRHAGE
     Dosage: 8 MG, QD

REACTIONS (1)
  - HAEMORRHAGE [None]
